FAERS Safety Report 14391898 (Version 1)
Quarter: 2018Q1

REPORT INFORMATION
  Report Type: Report from Study
  Country: US (occurrence: US)
  Receive Date: 20180116
  Receipt Date: 20180116
  Transmission Date: 20180509
  Serious: Yes (Death, Other)
  Sender: FDA-Public Use
  Company Number: US-PFIZER INC-2018017879

PATIENT

DRUGS (3)
  1. MITOXANTRONE HCL [Suspect]
     Active Substance: MITOXANTRONE HYDROCHLORIDE
     Indication: ACUTE MYELOID LEUKAEMIA
     Dosage: UNK UNK, CYCLIC ON DAYS 1 AND 5
     Route: 042
  2. SELINEXOR [Suspect]
     Active Substance: SELINEXOR
     Indication: ACUTE MYELOID LEUKAEMIA
     Dosage: 60 MG, CYCLIC ON DAYS 2, 4, 9, 11
     Route: 048
  3. CYTARABINE. [Suspect]
     Active Substance: CYTARABINE
     Indication: ACUTE MYELOID LEUKAEMIA
     Dosage: HIGH DOSE, CYCLIC ON DAYS 1 AND 5
     Route: 042

REACTIONS (2)
  - Haemorrhagic stroke [Fatal]
  - Platelet count decreased [Unknown]
